FAERS Safety Report 25724628 (Version 1)
Quarter: 2025Q3

REPORT INFORMATION
  Report Type: Spontaneous
  Country: GB (occurrence: GB)
  Receive Date: 20250826
  Receipt Date: 20250826
  Transmission Date: 20251021
  Serious: Yes (Other)
  Sender: TEVA
  Company Number: None

PATIENT
  Age: 40 Year
  Sex: Female

DRUGS (1)
  1. LEVOTHYROXINE [Suspect]
     Active Substance: LEVOTHYROXINE
     Indication: Adverse drug reaction
     Dosage: TEVA UK, IN THE MORNING
     Route: 065

REACTIONS (5)
  - Brain fog [Recovered/Resolved]
  - Headache [Recovered/Resolved]
  - Weight increased [Recovering/Resolving]
  - Poor quality sleep [Recovered/Resolved]
  - Hot flush [Recovered/Resolved]
